FAERS Safety Report 5109743-8 (Version None)
Quarter: 2006Q3

REPORT INFORMATION
  Report Type: 
  Country: None (occurrence: None)
  Receive Date: 20060918
  Receipt Date: 20060526
  Transmission Date: 20061208
  Serious: Yes (Death)
  Sender: FDA-Public Use
  Company Number: MEDI-0004269

PATIENT
  Age: 20 Month
  Sex: Female
  Weight: 11.1 kg

DRUGS (5)
  1. SYNAGIS [Suspect]
     Indication: ANTIVIRAL PROPHYLAXIS
     Dosage: SEE IMAGE
     Route: 030
     Dates: start: 20060105, end: 20060301
  2. SYNAGIS [Suspect]
     Indication: ANTIVIRAL PROPHYLAXIS
     Dosage: SEE IMAGE
     Route: 030
     Dates: start: 20060105
  3. SYNAGIS [Suspect]
     Indication: ANTIVIRAL PROPHYLAXIS
     Dosage: SEE IMAGE
     Route: 030
     Dates: start: 20060203
  4. SYNAGIS [Suspect]
  5. SYNAGIS [Suspect]

REACTIONS (4)
  - CARDIAC ARREST [None]
  - CARDIOMEGALY [None]
  - PULMONARY CALCIFICATION [None]
  - PULMONARY OEDEMA [None]
